FAERS Safety Report 9514941 (Version 3)
Quarter: 2013Q3

REPORT INFORMATION
  Report Type: Report from Study
  Country: BE (occurrence: BE)
  Receive Date: 20130911
  Receipt Date: 20130917
  Transmission Date: 20140515
  Serious: Yes (Hospitalization)
  Sender: FDA-Public Use
  Company Number: BE-AMGEN-US174993

PATIENT
  Age: 59 Year
  Sex: Male

DRUGS (7)
  1. ETANERCEPT [Suspect]
     Indication: RHEUMATOID ARTHRITIS
     Dosage: 25 MG, 2 TIMES/WK
     Route: 058
     Dates: start: 20020719, end: 20030921
  2. ETANERCEPT [Suspect]
     Dosage: 25 MG, 2X/WEEK
     Route: 058
     Dates: start: 20031003
  3. LEDERTREXATE                       /00113801/ [Concomitant]
     Dosage: UNK
     Route: 048
     Dates: start: 20021010, end: 20021105
  4. MEDROL                             /00049601/ [Concomitant]
     Dosage: UNK
     Route: 048
     Dates: start: 20040610
  5. DELTA-CORTRIL [Concomitant]
     Dosage: UNK
     Route: 048
     Dates: start: 20020619, end: 20040610
  6. TOLINDOL                           /00672001/ [Concomitant]
     Dosage: UNK
     Route: 048
     Dates: start: 200408
  7. VIOXX [Concomitant]
     Dosage: UNK
     Route: 048
     Dates: start: 200211, end: 200408

REACTIONS (1)
  - Hip arthroplasty [Recovered/Resolved]
